FAERS Safety Report 9479333 (Version 1)
Quarter: 2013Q3

REPORT INFORMATION
  Report Type: Spontaneous
  Country: GB (occurrence: GB)
  Receive Date: 20130827
  Receipt Date: 20130827
  Transmission Date: 20140515
  Serious: Yes (Other)
  Sender: FDA-Public Use
  Company Number: PHHY2013GB090982

PATIENT
  Sex: Male

DRUGS (1)
  1. RISPERIDONE [Suspect]

REACTIONS (1)
  - Myasthenia gravis [Unknown]
